FAERS Safety Report 4499226-0 (Version None)
Quarter: 2004Q4

REPORT INFORMATION
  Report Type: 
  Country: None (occurrence: None)
  Receive Date: 20041111
  Receipt Date: 20041103
  Transmission Date: 20050328
  Serious: Yes (Life-Threatening)
  Sender: FDA-Public Use
  Company Number: 384547

PATIENT
  Age: 71 Year
  Sex: Male

DRUGS (3)
  1. CARVEDILOL [Suspect]
     Dosage: 1.25MG PER DAY
     Route: 048
     Dates: start: 20040705
  2. RENIVACE [Concomitant]
  3. ASPIRIN [Concomitant]
     Dates: start: 20040703

REACTIONS (6)
  - BRADYCARDIA [None]
  - CONDITION AGGRAVATED [None]
  - ELECTROCARDIOGRAM ABNORMAL [None]
  - HYPOTENSION [None]
  - NODAL RHYTHM [None]
  - SICK SINUS SYNDROME [None]
